FAERS Safety Report 13159750 (Version 2)
Quarter: 2017Q1

REPORT INFORMATION
  Report Type: Report from Study
  Country: None (occurrence: CA)
  Receive Date: 20170127
  Receipt Date: 20170203
  Transmission Date: 20170428
  Serious: Yes (Death, Other)
  Sender: FDA-Public Use
  Company Number: CA-ABBVIE-17P-028-1853834-00

PATIENT
  Age: 96 Year
  Sex: Female

DRUGS (1)
  1. HUMIRA [Suspect]
     Active Substance: ADALIMUMAB
     Indication: CROHN^S DISEASE
     Route: 058
     Dates: start: 20151231

REACTIONS (2)
  - General physical health deterioration [Unknown]
  - Death [Fatal]

NARRATIVE: CASE EVENT DATE: 20161225
